FAERS Safety Report 4989404-6 (Version None)
Quarter: 2006Q2

REPORT INFORMATION
  Report Type: 
  Country: None (occurrence: None)
  Receive Date: 20060426
  Receipt Date: 20060417
  Transmission Date: 20061013
  Serious: Yes (Other)
  Sender: FDA-Public Use
  Company Number: 163-20785-06040584

PATIENT
  Age: 69 Year
  Sex: Female

DRUGS (7)
  1. THALOMID [Suspect]
     Indication: MULTIPLE MYELOMA
     Dosage: 100 MG, DAILY, ORAL
     Route: 048
     Dates: start: 20051021, end: 20060331
  2. INTRON A [Suspect]
     Indication: MULTIPLE MYELOMA
     Dosage: 3 MIU, THREE TIMES EACH WEEK,  SUBCUTANEOUS
     Route: 058
     Dates: start: 20051021, end: 20060331
  3. ZOMETA [Suspect]
     Indication: MULTIPLE MYELOMA
     Dosage: 4 MG, EVERY 4 WEEKS, INTRAVENOUS
     Route: 042
     Dates: end: 20060331
  4. VASCARDIN (ISOSORBIDE DINITRATE) [Concomitant]
  5. CLOZARIL [Concomitant]
  6. MILURIT (ALLOPURINOL) [Concomitant]
  7. CALTRATE (CALCIUM CARBONATE) [Concomitant]

REACTIONS (1)
  - OSTEONECROSIS [None]
